FAERS Safety Report 21334423 (Version 1)
Quarter: 2022Q3

REPORT INFORMATION
  Report Type: Spontaneous
  Country: US (occurrence: US)
  Receive Date: 20220914
  Receipt Date: 20220914
  Transmission Date: 20221027
  Serious: Yes (Hospitalization, Other)
  Sender: FDA-Public Use
  Company Number: US-SLATE RUN PHARMACEUTICALS-22US001319

PATIENT

DRUGS (12)
  1. AZITHROMYCIN [Suspect]
     Active Substance: AZITHROMYCIN
     Indication: Maternal exposure during pregnancy
     Dosage: UNK
     Dates: start: 2021
  2. OXYGEN [Concomitant]
     Active Substance: OXYGEN
     Indication: Maternal exposure during pregnancy
     Dosage: UNK
     Dates: start: 2021
  3. CEFTRIAXONE [Concomitant]
     Active Substance: CEFTRIAXONE
     Indication: Maternal exposure during pregnancy
     Dosage: UNK
     Dates: start: 2021
  4. DEXAMETHASONE [Concomitant]
     Active Substance: DEXAMETHASONE
     Indication: Maternal exposure during pregnancy
     Dosage: UNK
     Dates: start: 2021
  5. HYDROMORPHONE [Concomitant]
     Active Substance: HYDROMORPHONE
     Indication: Maternal exposure during pregnancy
     Dosage: UNK
     Dates: start: 2021
  6. DEXMEDETOMIDINE [Concomitant]
     Active Substance: DEXMEDETOMIDINE
     Indication: Maternal exposure during pregnancy
     Dosage: UNK
     Dates: start: 2021
  7. PROPOFOL [Concomitant]
     Active Substance: PROPOFOL
     Indication: Maternal exposure during pregnancy
     Dosage: UNK
     Dates: start: 2021
  8. NITRIC OXIDE [Concomitant]
     Active Substance: NITRIC OXIDE
     Indication: Maternal exposure during pregnancy
     Dosage: UNK
     Dates: start: 2021
  9. ARGATROBAN [Concomitant]
     Active Substance: ARGATROBAN
     Indication: Maternal exposure during pregnancy
     Dosage: UNK
     Dates: start: 2021
  10. HEPARIN [Concomitant]
     Active Substance: HEPARIN SODIUM
     Indication: Maternal exposure during pregnancy
     Dosage: UNK
     Dates: start: 2021
  11. UNSPECIFIED INGREDIENT [Concomitant]
     Active Substance: UNSPECIFIED INGREDIENT
     Indication: Maternal therapy to enhance foetal lung maturity
     Dosage: UNK
     Dates: start: 2021
  12. UNSPECIFIED INGREDIENT [Concomitant]
     Active Substance: UNSPECIFIED INGREDIENT
     Indication: Maternal exposure during pregnancy
     Dosage: UNK
     Dates: start: 2021

REACTIONS (5)
  - Premature baby [Recovered/Resolved]
  - Apgar score low [Unknown]
  - Foetal heart rate abnormal [Unknown]
  - Respiratory distress [Unknown]
  - Foetal exposure during pregnancy [Recovered/Resolved]

NARRATIVE: CASE EVENT DATE: 20210101
